FAERS Safety Report 14922517 (Version 2)
Quarter: 2018Q2

REPORT INFORMATION
  Report Type: Spontaneous
  Country: US (occurrence: US)
  Receive Date: 20180522
  Receipt Date: 20180524
  Transmission Date: 20180711
  Serious: No
  Sender: FDA-Public Use
  Company Number: US-PFIZER INC-2018206802

PATIENT
  Age: 83 Year
  Sex: Female
  Weight: 88 kg

DRUGS (1)
  1. AROMASIN [Suspect]
     Active Substance: EXEMESTANE
     Indication: BREAST MASS
     Dosage: 125 MG, DAILY
     Route: 048

REACTIONS (1)
  - Osteoporosis [Unknown]
